FAERS Safety Report 13111241 (Version 2)
Quarter: 2017Q1

REPORT INFORMATION
  Report Type: Report from Study
  Country: BR (occurrence: BR)
  Receive Date: 20170112
  Receipt Date: 20170317
  Transmission Date: 20170428
  Serious: No
  Sender: FDA-Public Use
  Company Number: ALCN2017BR000604

PATIENT
  Age: 71 Year
  Sex: Female

DRUGS (1)
  1. TRAVATAN Z [Suspect]
     Active Substance: TRAVOPROST
     Indication: PRODUCT USED FOR UNKNOWN INDICATION
     Dosage: UNK, QHS (1 TIME PER DAY AT NIGHT)
     Route: 047

REACTIONS (2)
  - Eye pain [Recovered/Resolved]
  - Visual impairment [Recovered/Resolved]
